FAERS Safety Report 7876238-8 (Version None)
Quarter: 2011Q4

REPORT INFORMATION
  Report Type: 
  Country: None (occurrence: None)
  Receive Date: 20111031
  Receipt Date: 20111018
  Transmission Date: 20120403
  Serious: Yes (Other)
  Sender: FDA-Public Use
  Company Number: US-VERTEX PHARMACEUTICALS INC.-AE-2011-002451

PATIENT
  Sex: Female
  Weight: 82.174 kg

DRUGS (5)
  1. INCIVEK [Suspect]
     Indication: HEPATITIS C
     Route: 048
     Dates: start: 20110829
  2. ZANTAC [Concomitant]
     Route: 048
  3. BENADRYL [Concomitant]
     Route: 048
  4. PEGASYS [Concomitant]
     Indication: HEPATITIS C
     Route: 058
     Dates: start: 20110829
  5. RIBAVIRIN [Concomitant]
     Indication: HEPATITIS C
     Route: 048
     Dates: start: 20110829

REACTIONS (6)
  - PYREXIA [None]
  - PRURITUS [None]
  - RASH [None]
  - WHITE BLOOD CELL COUNT DECREASED [None]
  - CHILLS [None]
  - PRODUCTIVE COUGH [None]
